FAERS Safety Report 8771085 (Version 1)
Quarter: 2012Q4

REPORT INFORMATION
  Report Type: 
  Country: US (occurrence: US)
  Receive Date: 20120906
  Receipt Date: 20120906
  Transmission Date: 20130627
  Serious: Yes (Other)
  Sender: FDA-Public Use
  Company Number: US-ABBOTT-12P-163-0974022-00

PATIENT
  Age: 7 Year
  Sex: Female

DRUGS (6)
  1. VALPROIC ACID [Suspect]
     Indication: FRONTAL LOBE EPILEPSY
     Route: 065
  2. PREGABALIN [Suspect]
     Indication: FRONTAL LOBE EPILEPSY
     Route: 065
  3. OXCARBAZEPINE [Suspect]
     Indication: FRONTAL LOBE EPILEPSY
     Route: 065
  4. PHENYTOIN [Suspect]
     Indication: FRONTAL LOBE EPILEPSY
     Route: 065
  5. TOPIRAMATE [Suspect]
     Indication: FRONTAL LOBE EPILEPSY
     Route: 065
  6. LEVETIRACETAM [Concomitant]
     Indication: PRODUCT USED FOR UNKNOWN INDICATION

REACTIONS (5)
  - Convulsion [Recovered/Resolved]
  - Rebound effect [Unknown]
  - Drug ineffective [Unknown]
  - Therapeutic response decreased [Unknown]
  - Rash [Unknown]
